FAERS Safety Report 22075129 (Version 1)
Quarter: 2023Q1

REPORT INFORMATION
  Report Type: Spontaneous
  Country: US (occurrence: None)
  Receive Date: 20230308
  Receipt Date: 20230308
  Transmission Date: 20230418
  Serious: Yes (unspecified)
  Sender: FDA-Public Use
  Company Number: None

PATIENT
  Age: 13 Year
  Sex: Female
  Weight: 42.75 kg

DRUGS (8)
  1. AZSTARYS [Suspect]
     Active Substance: DEXMETHYLPHENIDATE HYDROCHLORIDE\SERDEXMETHYLPHENIDATE CHLORIDE
     Indication: Attention deficit hyperactivity disorder
     Dosage: OTHER QUANTITY : 1 CAPSULE(S);?
     Route: 048
     Dates: start: 20221127, end: 20230206
  2. CONCERTA [Suspect]
     Active Substance: METHYLPHENIDATE HYDROCHLORIDE
  3. FOCALIN [Suspect]
     Active Substance: DEXMETHYLPHENIDATE HYDROCHLORIDE
  4. VYVANSE [Suspect]
     Active Substance: LISDEXAMFETAMINE DIMESYLATE
  5. COVID-19 VACCINE NOS [Suspect]
     Active Substance: COVID-19 VACCINE NOS
  6. INFLUENZA VIRUS VACCINE [Suspect]
     Active Substance: INFLUENZA VIRUS VACCINE
  7. Dexedrine for ADHD [Concomitant]
  8. Trazodone for sleep disruption [Concomitant]

REACTIONS (11)
  - COVID-19 immunisation [None]
  - Contusion [None]
  - Angioedema [None]
  - Chemical burn [None]
  - Skin lesion [None]
  - Injection site discomfort [None]
  - Hypersensitivity [None]
  - Nasopharyngitis [None]
  - Allergic reaction to excipient [None]
  - Skin hyperpigmentation [None]
  - Therapy interrupted [None]

NARRATIVE: CASE EVENT DATE: 20221127
